FAERS Safety Report 5705895-7 (Version None)
Quarter: 2008Q2

REPORT INFORMATION
  Report Type: 
  Country: None (occurrence: None)
  Receive Date: 20080411
  Receipt Date: 20080331
  Transmission Date: 20081010
  Serious: Yes (Other)
  Sender: FDA-Public Use
  Company Number: 2007BI004597

PATIENT
  Age: 58 Year
  Sex: Female

DRUGS (1)
  1. AVONEX [Suspect]
     Indication: MULTIPLE SCLEROSIS
     Dosage: 30 UG; QW; IM
     Route: 030
     Dates: start: 19981116, end: 20071107

REACTIONS (7)
  - ANAEMIA [None]
  - BLINDNESS UNILATERAL [None]
  - DEMENTIA ALZHEIMER'S TYPE [None]
  - HEPATITIS C [None]
  - HYPERTENSION [None]
  - SKIN EXFOLIATION [None]
  - URINARY INCONTINENCE [None]
